FAERS Safety Report 9247304 (Version 1)
Quarter: 2013Q2

REPORT INFORMATION
  Report Type: Spontaneous
  Country: JP (occurrence: JP)
  Receive Date: 20130423
  Receipt Date: 20130423
  Transmission Date: 20140414
  Serious: Yes (Other)
  Sender: FDA-Public Use
  Company Number: JP-MERCK-1304JPN013602

PATIENT
  Sex: Female

DRUGS (1)
  1. FOSAMAC TABLETS-5 [Suspect]
     Indication: OSTEOPOROSIS
     Dosage: 5 MG DAILY OR 35 MG WEEKLY
     Route: 048

REACTIONS (1)
  - Hip fracture [Unknown]
